FAERS Safety Report 4745857-X (Version None)
Quarter: 2005Q3

REPORT INFORMATION
  Report Type: 
  Country: None (occurrence: None)
  Receive Date: 20050816
  Receipt Date: 20050809
  Transmission Date: 20060218
  Serious: Yes (Hospitalization, Other)
  Sender: FDA-Public Use
  Company Number: US-ABBOTT-05P-163-0307896-00

PATIENT
  Sex: Male
  Weight: 67.192 kg

DRUGS (8)
  1. HUMIRA [Suspect]
     Indication: RHEUMATOID ARTHRITIS
     Route: 058
     Dates: start: 20030801
  2. METHOTREXATE [Concomitant]
     Indication: RHEUMATOID ARTHRITIS
     Route: 048
  3. FOLIC ACID [Concomitant]
     Indication: RHEUMATOID ARTHRITIS
     Route: 048
  4. CYANOCOBALAMIN [Concomitant]
     Indication: RHEUMATOID ARTHRITIS
     Route: 050
  5. PREDNISONE [Concomitant]
     Indication: RHEUMATOID ARTHRITIS
     Route: 048
  6. POTASSIUM CHLORIDE [Concomitant]
     Indication: HYPOKALAEMIA
     Route: 048
  7. METOPROLOL [Concomitant]
     Indication: CORONARY ARTERY DISEASE
     Route: 048
  8. CIMETIDINE [Concomitant]
     Indication: PROPHYLAXIS
     Route: 048

REACTIONS (3)
  - ABDOMINAL PAIN [None]
  - CHOLELITHIASIS [None]
  - PANCREATITIS [None]
